FAERS Safety Report 23190870 (Version 1)
Quarter: 2023Q4

REPORT INFORMATION
  Report Type: Spontaneous
  Country: CA (occurrence: None)
  Receive Date: 20231116
  Receipt Date: 20231116
  Transmission Date: 20240110
  Serious: Yes (Other)
  Sender: FDA-Public Use
  Company Number: CA-PFIZER INC-202300337618

PATIENT
  Age: 73 Year
  Sex: Female

DRUGS (15)
  1. METHOTREXATE [Suspect]
     Active Substance: METHOTREXATE
     Indication: Rheumatoid arthritis
     Dosage: 1 DF, STATUS: DISCONTINUED
     Dates: end: 2022
  2. METHOTREXATE [Suspect]
     Active Substance: METHOTREXATE
     Dates: end: 202209
  3. ACTEMRA [Concomitant]
     Active Substance: TOCILIZUMAB
     Dosage: 1 DF
  4. ACTEMRA [Concomitant]
     Active Substance: TOCILIZUMAB
     Dosage: EVERY 2 WEEKS
     Dates: start: 202209
  5. RITUXIMAB [Concomitant]
     Active Substance: RITUXIMAB
     Indication: Rheumatoid arthritis
     Dosage: 1000 MG, DAY 1 AND DAY 15
     Dates: start: 20230308, end: 20230324
  6. ADALAT [Concomitant]
     Active Substance: NIFEDIPINE
  7. CLONAZEPAM [Concomitant]
     Active Substance: CLONAZEPAM
  8. CRESTOR [Concomitant]
     Active Substance: ROSUVASTATIN CALCIUM
  9. FELODIPINE [Concomitant]
     Active Substance: FELODIPINE
  10. FOLIC ACID [Concomitant]
     Active Substance: FOLIC ACID
  11. METOPROLOL [Concomitant]
     Active Substance: METOPROLOL
  12. PANTOPRAZOLE SODIUM [Concomitant]
     Active Substance: PANTOPRAZOLE SODIUM
  13. PROZAC [Concomitant]
     Active Substance: FLUOXETINE HYDROCHLORIDE
  14. PREDNISONE [Concomitant]
     Active Substance: PREDNISONE
  15. VENTOLIN [Concomitant]
     Active Substance: ALBUTEROL SULFATE
     Indication: Dyspnoea exertional

REACTIONS (5)
  - Interstitial lung disease [Unknown]
  - Oesophageal dilatation [Unknown]
  - Pericardial effusion [Unknown]
  - Pulmonary mass [Unknown]
  - Thymic cyst [Unknown]
